FAERS Safety Report 25315740 (Version 2)
Quarter: 2025Q3

REPORT INFORMATION
  Report Type: Spontaneous
  Country: BR (occurrence: BR)
  Receive Date: 20250515
  Receipt Date: 20250715
  Transmission Date: 20251020
  Serious: Yes (Other)
  Sender: UCB
  Company Number: BR-UCBSA-2025028009

PATIENT
  Sex: Female

DRUGS (1)
  1. CERTOLIZUMAB PEGOL [Suspect]
     Active Substance: CERTOLIZUMAB PEGOL
     Indication: Spondylitis
     Dosage: 400 MILLIGRAM, EV 30 DAYS
     Dates: start: 2023, end: 2025

REACTIONS (1)
  - Squamous cell carcinoma [Not Recovered/Not Resolved]
